FAERS Safety Report 22130148 (Version 10)
Quarter: 2024Q2

REPORT INFORMATION
  Report Type: Report from Study
  Country: US (occurrence: US)
  Receive Date: 20230323
  Receipt Date: 20240604
  Transmission Date: 20240716
  Serious: Yes (Hospitalization, Other)
  Sender: FDA-Public Use
  Company Number: US-JAZZ-2022-US-002912

PATIENT
  Age: 78 Year
  Sex: Male

DRUGS (28)
  1. XYREM [Suspect]
     Active Substance: SODIUM OXYBATE
     Indication: Narcolepsy
     Dosage: 4.5 GRAM, BID
     Route: 048
     Dates: start: 200211, end: 202007
  2. XYREM [Suspect]
     Active Substance: SODIUM OXYBATE
     Indication: Cataplexy
     Dosage: DOSE ADJUSTMENT
     Route: 048
     Dates: start: 202008, end: 202109
  3. XYREM [Suspect]
     Active Substance: SODIUM OXYBATE
     Indication: Somnolence
     Dosage: 4.5 GRAM, BID
     Route: 048
     Dates: start: 202110
  4. XYREM [Suspect]
     Active Substance: SODIUM OXYBATE
     Dosage: 4 GRAM, BID
  5. XYREM [Suspect]
     Active Substance: SODIUM OXYBATE
     Dosage: UNK
  6. XYREM [Suspect]
     Active Substance: SODIUM OXYBATE
     Dosage: UNK
  7. XYREM [Suspect]
     Active Substance: SODIUM OXYBATE
     Dosage: 5.5 GRAM, BID
  8. CLONAZEPAM [Suspect]
     Active Substance: CLONAZEPAM
     Indication: Product used for unknown indication
     Dosage: UNK, QD
     Dates: start: 20151201
  9. ALUMINUM HYDROXIDE\DICYCLOMINE HYDROCHLORIDE\MAGNESIUM OXIDE [Suspect]
     Active Substance: ALUMINUM HYDROXIDE\DICYCLOMINE HYDROCHLORIDE\MAGNESIUM OXIDE
     Indication: Product used for unknown indication
     Dosage: UNK
  10. TAMSULOSIN [Suspect]
     Active Substance: TAMSULOSIN
     Indication: Product used for unknown indication
  11. FENOFIBRATE [Concomitant]
     Active Substance: FENOFIBRATE
     Indication: Product used for unknown indication
     Dosage: UNK
     Dates: start: 20150929
  12. LOSARTAN AND HYDROCHLOROTHIAZIDE [Concomitant]
     Active Substance: HYDROCHLOROTHIAZIDE\LOSARTAN POTASSIUM
     Indication: Product used for unknown indication
     Dosage: 100-12.5 MG
     Dates: start: 20150929
  13. CIALIS [Concomitant]
     Active Substance: TADALAFIL
     Indication: Product used for unknown indication
     Dosage: UNK
     Dates: start: 20150929
  14. ATORVASTATIN CALCIUM [Concomitant]
     Active Substance: ATORVASTATIN CALCIUM
     Indication: Product used for unknown indication
     Dosage: UNK, QD
     Dates: start: 20150929
  15. GABAPENTIN [Concomitant]
     Active Substance: GABAPENTIN
     Indication: Product used for unknown indication
     Dosage: UNK
     Dates: start: 20150601
  16. LEVOTHYROXINE [Concomitant]
     Active Substance: LEVOTHYROXINE\LEVOTHYROXINE SODIUM
     Indication: Product used for unknown indication
     Dosage: UNK
     Dates: start: 20200130
  17. HYDRALAZINE [Concomitant]
     Active Substance: HYDRALAZINE HYDROCHLORIDE
     Indication: Product used for unknown indication
     Dosage: UNK
     Dates: start: 20230228
  18. ZONEGRAN [Concomitant]
     Active Substance: ZONISAMIDE
     Indication: Product used for unknown indication
     Dosage: UNK
  19. ZONEGRAN [Concomitant]
     Active Substance: ZONISAMIDE
     Dosage: UNK
  20. ASPIRIN [Concomitant]
     Active Substance: ASPIRIN
     Indication: Product used for unknown indication
     Dosage: UNK UNK, QD
     Route: 048
  21. ASPIRIN [Concomitant]
     Active Substance: ASPIRIN
     Dosage: UNK UNK, QD
     Route: 048
  22. TRAZODONE [Concomitant]
     Active Substance: TRAZODONE HYDROCHLORIDE
     Indication: Product used for unknown indication
     Dosage: UNK
  23. TRAZODONE [Concomitant]
     Active Substance: TRAZODONE HYDROCHLORIDE
     Dosage: UNK
  24. OXYCODONE AND ACETAMINOPHEN [Concomitant]
     Active Substance: ACETAMINOPHEN\OXYCODONE HYDROCHLORIDE
     Indication: Product used for unknown indication
     Dosage: UNK
  25. OXYCODONE AND ACETAMINOPHEN [Concomitant]
     Active Substance: ACETAMINOPHEN\OXYCODONE HYDROCHLORIDE
     Dosage: UNK
  26. FUROSEMIDE [Concomitant]
     Active Substance: FUROSEMIDE
     Indication: Product used for unknown indication
     Dosage: UNK
     Dates: start: 20240415
  27. LOSARTAN POTASSIUM [Concomitant]
     Active Substance: LOSARTAN POTASSIUM
     Indication: Product used for unknown indication
     Dosage: UNK
     Dates: start: 20240415
  28. CLAVULANATE POTASSIUM [Concomitant]
     Active Substance: CLAVULANATE POTASSIUM
     Indication: Product used for unknown indication
     Dosage: UNK
     Dates: start: 20240415

REACTIONS (33)
  - Neuropathy peripheral [Unknown]
  - Craniofacial fracture [Unknown]
  - Pneumonia [Recovered/Resolved]
  - Thrombosis [Recovering/Resolving]
  - Fall [Unknown]
  - Loss of consciousness [Unknown]
  - Hospitalisation [Unknown]
  - Hypoacusis [Unknown]
  - Chest injury [Unknown]
  - Fall [Unknown]
  - Prostatomegaly [Unknown]
  - Cheilitis [Unknown]
  - Abdominal discomfort [Unknown]
  - Seborrhoeic keratosis [Unknown]
  - Rib fracture [Unknown]
  - Foot fracture [Unknown]
  - Miliaria [Unknown]
  - Memory impairment [Unknown]
  - Weight decreased [Unknown]
  - Enuresis [Unknown]
  - Headache [Unknown]
  - Hypotension [Unknown]
  - Back pain [Unknown]
  - Dry skin [Unknown]
  - Depressed mood [Unknown]
  - Pollakiuria [Unknown]
  - Malaise [Unknown]
  - Confusional state [Unknown]
  - Back injury [Unknown]
  - Pollakiuria [Unknown]
  - Prescribed overdose [Unknown]
  - Product administration interrupted [Unknown]
  - Treatment noncompliance [Unknown]

NARRATIVE: CASE EVENT DATE: 20220128
